FAERS Safety Report 14792783 (Version 1)
Quarter: 2018Q2

REPORT INFORMATION
  Report Type: Spontaneous
  Country: US (occurrence: US)
  Receive Date: 20180414
  Receipt Date: 20180414
  Transmission Date: 20180711
  Serious: No
  Sender: FDA-Public Use
  Company Number: None

PATIENT
  Age: 71 Year
  Sex: Female

DRUGS (1)
  1. IBRANCE [Suspect]
     Active Substance: PALBOCICLIB
     Dosage: 125MG 1 QD FOR 21 DAY ORAL
     Route: 048
     Dates: start: 20170723

REACTIONS (1)
  - Dental necrosis [None]

NARRATIVE: CASE EVENT DATE: 20180402
